FAERS Safety Report 11087450 (Version 1)
Quarter: 2015Q2

REPORT INFORMATION
  Report Type: Spontaneous
  Country: IN (occurrence: IN)
  Receive Date: 20150504
  Receipt Date: 20150504
  Transmission Date: 20150821
  Serious: Yes (Other)
  Sender: FDA-Public Use
  Company Number: IN-AUROBINDO-AUR-APL-2015-03898

PATIENT
  Age: 21 Year
  Sex: Male

DRUGS (5)
  1. ESCITALOPRAM 20 MG [Interacting]
     Active Substance: ESCITALOPRAM OXALATE
     Indication: ANXIETY DISORDER
  2. OLANZAPINE. [Interacting]
     Active Substance: OLANZAPINE
     Indication: PERSONALITY DISORDER
     Dosage: 5 MG, DAILY
     Route: 065
  3. OLANZAPINE. [Interacting]
     Active Substance: OLANZAPINE
     Indication: ANXIETY DISORDER
  4. ESCITALOPRAM 20 MG [Suspect]
     Active Substance: ESCITALOPRAM OXALATE
     Indication: PERSONALITY DISORDER
     Dosage: 20 MG, DAILY
     Route: 065
  5. CANNABIS [Interacting]
     Active Substance: CANNABIS SATIVA SUBSP. INDICA TOP
     Indication: PRODUCT USED FOR UNKNOWN INDICATION
     Route: 065

REACTIONS (8)
  - Hyperaesthesia [Recovered/Resolved]
  - Dyskinesia [Recovered/Resolved]
  - Soliloquy [Recovered/Resolved]
  - Drug interaction [Unknown]
  - Poisoning [Recovered/Resolved]
  - Somnolence [Recovered/Resolved]
  - Delirium [Recovered/Resolved]
  - Consciousness fluctuating [Recovered/Resolved]
